FAERS Safety Report 7428764-3 (Version None)
Quarter: 2011Q2

REPORT INFORMATION
  Report Type: 
  Country: None (occurrence: None)
  Receive Date: 20110421
  Receipt Date: 20110420
  Transmission Date: 20111010
  Serious: Yes (Other)
  Sender: FDA-Public Use
  Company Number: CN-PFIZER INC-2011085966

PATIENT
  Sex: Male

DRUGS (1)
  1. ZOLOFT [Suspect]
     Dosage: 1 TABLET PER DAY
     Route: 048

REACTIONS (4)
  - VISUAL ACUITY REDUCED [None]
  - DIZZINESS [None]
  - CHEST DISCOMFORT [None]
  - DECREASED APPETITE [None]
